FAERS Safety Report 26123889 (Version 1)
Quarter: 2025Q4

REPORT INFORMATION
  Report Type: Spontaneous
  Country: CN (occurrence: CN)
  Receive Date: 20251205
  Receipt Date: 20251205
  Transmission Date: 20260117
  Serious: Yes (Other)
  Sender: ROCHE
  Company Number: CN-ROCHE-10000447765

PATIENT
  Age: 57 Year
  Sex: Female

DRUGS (4)
  1. PERTUZUMAB [Suspect]
     Active Substance: PERTUZUMAB
     Indication: Breast cancer in situ
     Route: 042
     Dates: start: 20251111, end: 20251111
  2. TRASTUZUMAB [Suspect]
     Active Substance: TRASTUZUMAB
     Indication: Breast cancer in situ
     Route: 042
     Dates: start: 20251111, end: 20251111
  3. CARBOPLATIN [Suspect]
     Active Substance: CARBOPLATIN
     Indication: Breast cancer in situ
     Route: 042
     Dates: start: 20251112, end: 20251112
  4. DOCETAXEL [Suspect]
     Active Substance: DOCETAXEL
     Indication: Breast cancer in situ
     Route: 042
     Dates: start: 20251112, end: 20251112

REACTIONS (6)
  - White blood cell count decreased [Recovering/Resolving]
  - Hepatic function abnormal [Recovering/Resolving]
  - Renal impairment [Unknown]
  - Cytopenia [Unknown]
  - Dizziness [Unknown]
  - Diarrhoea [Unknown]

NARRATIVE: CASE EVENT DATE: 20251117
